FAERS Safety Report 9556242 (Version 1)
Quarter: 2013Q3

REPORT INFORMATION
  Report Type: Spontaneous
  Country: US (occurrence: None)
  Receive Date: 20130830
  Receipt Date: 20130830
  Transmission Date: 20140515
  Serious: Yes (Other)
  Sender: FDA-Public Use
  Company Number: AMAG201300107

PATIENT
  Age: 63 Year
  Sex: Male

DRUGS (1)
  1. FERAHEME [Suspect]
     Route: 042
     Dates: start: 20130621, end: 20130621

REACTIONS (3)
  - Cardiac arrest [None]
  - Syncope [None]
  - Hypotension [None]
